FAERS Safety Report 20917013 (Version 2)
Quarter: 2022Q4

REPORT INFORMATION
  Report Type: Other
  Country: GT (occurrence: GT)
  Receive Date: 20220606
  Receipt Date: 20221215
  Transmission Date: 20230113
  Serious: Yes (Death)
  Sender: FDA-Public Use
  Company Number: GT-TOLMAR, INC.-22GT034759

PATIENT
  Sex: Male

DRUGS (4)
  1. ELIGARD [Suspect]
     Active Substance: LEUPROLIDE ACETATE
     Indication: Prostate cancer
     Dosage: 45 MILLIGRAM, Q 6 MONTH
     Route: 058
     Dates: start: 20211208, end: 20220616
  2. ASPIRIN [Concomitant]
     Active Substance: ASPIRIN
     Indication: Pain
  3. ACETAMINOPHEN [Concomitant]
     Active Substance: ACETAMINOPHEN
     Indication: Pain
  4. TEOPRIN [Concomitant]
     Indication: Prostate cancer
     Dosage: 1 CAPSULE PER DAY

REACTIONS (4)
  - Prostate cancer metastatic [Fatal]
  - Anxiety [Unknown]
  - Gait disturbance [Unknown]
  - Pain in extremity [Unknown]
